FAERS Safety Report 6293224-2 (Version None)
Quarter: 2009Q3

REPORT INFORMATION
  Report Type: 
  Country: None (occurrence: None)
  Receive Date: 20090731
  Receipt Date: 20090721
  Transmission Date: 20100115
  Serious: Yes (Hospitalization)
  Sender: FDA-Public Use
  Company Number: AU-SANOFI-SYNTHELABO-A01200907620

PATIENT
  Sex: Male

DRUGS (8)
  1. PRILOSEC [Concomitant]
     Indication: DRUG USE FOR UNKNOWN INDICATION
     Dosage: UNK
     Route: 065
  2. CARDIZEM [Concomitant]
     Indication: DRUG USE FOR UNKNOWN INDICATION
     Dosage: UNK
     Route: 065
  3. MINAX [Concomitant]
     Indication: DRUG USE FOR UNKNOWN INDICATION
     Dosage: UNK
     Route: 065
  4. ATACAND [Concomitant]
     Indication: DRUG USE FOR UNKNOWN INDICATION
     Dosage: UNK
     Route: 065
  5. PLAVIX [Suspect]
     Indication: ACUTE CORONARY SYNDROME
     Route: 048
     Dates: start: 20081201, end: 20090501
  6. PLAVIX [Suspect]
     Route: 048
     Dates: start: 20090515, end: 20090528
  7. PLAVIX [Suspect]
     Route: 048
     Dates: start: 20090529, end: 20090620
  8. PLAVIX [Suspect]
     Route: 048
     Dates: start: 20090622

REACTIONS (3)
  - DIVERTICULITIS [None]
  - RASH MACULAR [None]
  - URETHRAL OBSTRUCTION [None]
